FAERS Safety Report 6082807-0 (Version None)
Quarter: 2009Q1

REPORT INFORMATION
  Report Type: 
  Country: None (occurrence: None)
  Receive Date: 20090202
  Receipt Date: 20070517
  Transmission Date: 20090719
  Serious: Yes (Other)
  Sender: FDA-Public Use
  Company Number: 262564

PATIENT
  Age: 77 Year
  Sex: Female

DRUGS (1)
  1. NOVOLOG [Suspect]
     Indication: INSULIN-REQUIRING TYPE 2 DIABETES MELLITUS
     Dosage: 20-24 IU, QD, SUBCUTANEOUS
     Route: 058
     Dates: start: 20000101

REACTIONS (1)
  - HYPOGLYCAEMIC UNCONSCIOUSNESS [None]
